FAERS Safety Report 4557270-9 (Version None)
Quarter: 2005Q1

REPORT INFORMATION
  Report Type: 
  Country: None (occurrence: None)
  Receive Date: 20050118
  Receipt Date: 20050107
  Transmission Date: 20050727
  Serious: Yes (Hospitalization)
  Sender: FDA-Public Use
  Company Number: 061-0981-M0000222

PATIENT
  Age: 70 Year
  Sex: Male
  Weight: 87 kg

DRUGS (13)
  1. ATORVASTATIN (ATORVASTATIN) [Suspect]
     Indication: HYPERLIPIDAEMIA
     Dosage: SEE IMAGE, ORAL
     Route: 048
     Dates: start: 19981222, end: 19990217
  2. ATORVASTATIN (ATORVASTATIN) [Suspect]
     Indication: HYPERLIPIDAEMIA
     Dosage: SEE IMAGE, ORAL
     Route: 048
     Dates: start: 19990218
  3. FOLIC ACID [Concomitant]
  4. AMLODIPINE [Concomitant]
  5. THYROXIN (LEVOTHYROXINE SODIUM) [Concomitant]
  6. CISAPRIDE (CISAPRIDE) [Concomitant]
  7. ALLOPURINOL [Concomitant]
  8. OMEPRAZOLE [Concomitant]
  9. METOPROLOL TARTRATE [Concomitant]
  10. ASPIRIN [Concomitant]
  11. TRANDOLAPRIL (TRANDOLAPRIL) [Concomitant]
  12. VERAPAMIL [Concomitant]
  13. INDAPAMIDE HEMIHYDRATE (INDAPAMIDE HEMIHYDRATE) [Concomitant]

REACTIONS (1)
  - CHOLELITHIASIS [None]
